FAERS Safety Report 13318682 (Version 1)
Quarter: 2017Q1

REPORT INFORMATION
  Report Type: Spontaneous
  Country: US (occurrence: US)
  Receive Date: 20170309
  Receipt Date: 20170309
  Transmission Date: 20170428
  Serious: Yes (Other)
  Sender: FDA-Public Use
  Company Number: None

PATIENT
  Age: 69 Year
  Sex: Male
  Weight: 96.8 kg

DRUGS (1)
  1. BEXAROTENE. [Suspect]
     Active Substance: BEXAROTENE
     Indication: MYCOSIS FUNGOIDES STAGE IV
     Dosage: MG PO
     Route: 048
     Dates: start: 20170206

REACTIONS (2)
  - Product physical issue [None]
  - Product quality issue [None]

NARRATIVE: CASE EVENT DATE: 20170213
